FAERS Safety Report 5365082-1 (Version None)
Quarter: 2007Q2

REPORT INFORMATION
  Report Type: 
  Country: None (occurrence: None)
  Receive Date: 20070530
  Receipt Date: 20070319
  Transmission Date: 20071010
  Serious: No
  Sender: FDA-Public Use
  Company Number: 2006PV014317

PATIENT
  Age: 53 Year
  Sex: Female
  Weight: 87.9978 kg

DRUGS (10)
  1. BYETTA [Suspect]
     Indication: DIABETES MELLITUS NON-INSULIN-DEPENDENT
     Dosage: 10 MCG; BID; SC; 5 MCG;BID; SC
     Route: 058
     Dates: start: 20060301, end: 20060521
  2. BYETTA [Suspect]
     Indication: DIABETES MELLITUS NON-INSULIN-DEPENDENT
     Dosage: 10 MCG; BID; SC; 5 MCG;BID; SC
     Route: 058
     Dates: start: 20060301, end: 20060601
  3. BYETTA [Suspect]
     Indication: DIABETES MELLITUS NON-INSULIN-DEPENDENT
     Dosage: 10 MCG; BID; SC; 5 MCG;BID; SC
     Route: 058
     Dates: start: 20060522
  4. BYETTA [Suspect]
     Indication: DIABETES MELLITUS NON-INSULIN-DEPENDENT
     Dosage: 10 MCG; BID; SC; 5 MCG;BID; SC
     Route: 058
     Dates: start: 20060601
  5. BYETTA [Suspect]
  6. METFORMIN HCL [Suspect]
     Indication: DIABETES MELLITUS NON-INSULIN-DEPENDENT
     Dosage: 500 MG; BID; PO;  1000 MG; BID; PO
     Route: 048
     Dates: end: 20060701
  7. METFORMIN HCL [Suspect]
     Indication: DIABETES MELLITUS NON-INSULIN-DEPENDENT
     Dosage: 500 MG; BID; PO;  1000 MG; BID; PO
     Route: 048
     Dates: start: 20040101
  8. GLUCOPHAGE [Concomitant]
  9. AMARYL [Concomitant]
  10. MESTINON [Concomitant]

REACTIONS (6)
  - BLOOD GLUCOSE DECREASED [None]
  - BLOOD TEST ABNORMAL [None]
  - DECREASED APPETITE [None]
  - FEELING ABNORMAL [None]
  - INCOHERENT [None]
  - WEIGHT DECREASED [None]
